FAERS Safety Report 12365374 (Version 4)
Quarter: 2016Q2

REPORT INFORMATION
  Report Type: Report from Study
  Country: CA (occurrence: CA)
  Receive Date: 20160512
  Receipt Date: 20160620
  Transmission Date: 20160815
  Serious: Yes (Hospitalization)
  Sender: FDA-Public Use
  Company Number: PHHY2016CA025248

PATIENT
  Age: 68 Year
  Sex: Female

DRUGS (2)
  1. COSENTYX [Suspect]
     Active Substance: SECUKINUMAB
     Indication: PSORIASIS
     Dosage: 300 MG, QMO
     Route: 058
     Dates: start: 20160222
  2. COSENTYX [Suspect]
     Active Substance: SECUKINUMAB
     Indication: ARTHRITIS

REACTIONS (7)
  - Pain [Unknown]
  - Device malfunction [Unknown]
  - Product use issue [Unknown]
  - Pneumonia [Unknown]
  - Arthritis [Unknown]
  - Incorrect dose administered [Unknown]
  - Meningitis [Unknown]

NARRATIVE: CASE EVENT DATE: 2016
